FAERS Safety Report 13056604 (Version 13)
Quarter: 2018Q2

REPORT INFORMATION
  Report Type: Spontaneous
  Country: US (occurrence: US)
  Receive Date: 20161222
  Receipt Date: 20180423
  Transmission Date: 20180711
  Serious: Yes (Hospitalization)
  Sender: FDA-Public Use
  Company Number: US-ACTELION-A-NJ2016-147364

PATIENT
  Age: 63 Year
  Sex: Female
  Weight: 38.95 kg

DRUGS (4)
  1. UPTRAVI [Suspect]
     Active Substance: SELEXIPAG
     Dosage: 1000 MCG, BID
     Route: 048
     Dates: start: 20170701
  2. SILDENAFIL CITRATE. [Concomitant]
     Active Substance: SILDENAFIL CITRATE
  3. UPTRAVI [Suspect]
     Active Substance: SELEXIPAG
     Indication: PULMONARY HYPERTENSION
     Dosage: 200 MCG, BID
     Route: 048
     Dates: start: 20161207, end: 20161219
  4. TRACLEER [Suspect]
     Active Substance: BOSENTAN
     Indication: PULMONARY HYPERTENSION
     Dosage: 125 MG, BID
     Route: 048
     Dates: start: 20150612

REACTIONS (13)
  - Somnolence [Unknown]
  - Weight decreased [Unknown]
  - Nausea [Unknown]
  - Decreased appetite [Unknown]
  - Dizziness [Unknown]
  - Abdominal pain upper [Unknown]
  - Dyspnoea [Unknown]
  - Pain [Unknown]
  - Vomiting [Unknown]
  - Diarrhoea [Unknown]
  - Asthenia [Unknown]
  - Pneumonia [Unknown]
  - Headache [Unknown]

NARRATIVE: CASE EVENT DATE: 20161216
